FAERS Safety Report 4962219-0 (Version None)
Quarter: 2006Q2

REPORT INFORMATION
  Report Type: 
  Country: None (occurrence: None)
  Receive Date: 20060403
  Receipt Date: 20060403
  Transmission Date: 20061013
  Serious: Yes (Life-Threatening, Other)
  Sender: FDA-Public Use
  Company Number: None

PATIENT
  Age: 53 Year
  Sex: Female
  Weight: 79.3795 kg

DRUGS (2)
  1. FENTANYL TRANSDERMAL SYSTEM [Suspect]
     Indication: GASTROOESOPHAGEAL REFLUX DISEASE
     Dosage: 25 MCG/H 72 HOURS TRANSDERMAL
     Route: 062
     Dates: start: 20060302, end: 20060331
  2. FENTANYL TRANSDERMAL SYSTEM [Suspect]
     Indication: SCLERODERMA
     Dosage: 25 MCG/H 72 HOURS TRANSDERMAL
     Route: 062
     Dates: start: 20060302, end: 20060331

REACTIONS (2)
  - DRUG EFFECT DECREASED [None]
  - PHARMACEUTICAL PRODUCT COMPLAINT [None]
